FAERS Safety Report 6491624-9 (Version None)
Quarter: 2009Q4

REPORT INFORMATION
  Report Type: 
  Country: None (occurrence: None)
  Receive Date: 20091207
  Receipt Date: 20091123
  Transmission Date: 20100525
  Serious: Yes (Death)
  Sender: FDA-Public Use
  Company Number: 008176

PATIENT
  Age: 6 Year

DRUGS (4)
  1. BUSULFEX [Suspect]
     Indication: STEM CELL TRANSPLANT
     Dosage: 5 MG/KG, INTRAVENOUS
     Route: 042
     Dates: start: 20050101, end: 20050101
  2. CYTOXAN [Concomitant]
  3. ATG (ANTILYMPHOCYTE IMMUNOGLOBULIN) (HORSE)) [Concomitant]
  4. THIOTEPA [Concomitant]

REACTIONS (1)
  - ADENOVIRUS INFECTION [None]
